FAERS Safety Report 25878189 (Version 1)
Quarter: 2025Q4

REPORT INFORMATION
  Report Type: Spontaneous
  Country: JP (occurrence: JP)
  Receive Date: 20251003
  Receipt Date: 20251003
  Transmission Date: 20260118
  Serious: Yes (Other)
  Sender: RANBAXY
  Company Number: JP-SUN PHARMACEUTICAL INDUSTRIES LTD-2025RR-528773

PATIENT
  Age: 73 Year
  Sex: Male
  Weight: 68.2 kg

DRUGS (1)
  1. METRONIDAZOLE [Suspect]
     Active Substance: METRONIDAZOLE
     Indication: Candida infection
     Dosage: 2000 MILLIGRAM, DAILY
     Route: 065

REACTIONS (1)
  - Encephalopathy [Recovered/Resolved]
